FAERS Safety Report 4351109-2 (Version None)
Quarter: 2004Q2

REPORT INFORMATION
  Report Type: 
  Country: None (occurrence: None)
  Receive Date: 20040427
  Receipt Date: 20040414
  Transmission Date: 20050107
  Serious: Yes (Disabling)
  Sender: FDA-Public Use
  Company Number: S04-FRA-01734-01

PATIENT
  Age: 25 Year
  Sex: Female

DRUGS (4)
  1. SEROPRAM (CITALOPRAM HYDROBROMIDE) [Suspect]
     Indication: DEPRESSION
     Dosage: 20 MG QD PO
     Route: 048
     Dates: start: 20040122, end: 20040219
  2. XANAX [Concomitant]
  3. TRINORDIOL [Concomitant]
  4. TRANXENE [Concomitant]

REACTIONS (3)
  - BLOOD PRESSURE DECREASED [None]
  - BRADYCARDIA [None]
  - MALAISE [None]
